FAERS Safety Report 10738380 (Version 2)
Quarter: 2015Q1

REPORT INFORMATION
  Report Type: Spontaneous
  Country: FR (occurrence: FR)
  Receive Date: 20150126
  Receipt Date: 20150205
  Transmission Date: 20150721
  Serious: Yes (Other)
  Sender: FDA-Public Use
  Company Number: FR-SYMPLMED PHARMACEUTICALS-2015SYM00023

PATIENT
  Age: 71 Year
  Sex: Male

DRUGS (2)
  1. ACEON [Suspect]
     Active Substance: PERINDOPRIL ERBUMINE
     Indication: HYPERTENSION
     Dosage: 4 MG, QD
     Route: 048
     Dates: start: 2014, end: 20150119
  2. CORGARD [Concomitant]
     Active Substance: NADOLOL
     Indication: HYPERTROPHIC CARDIOMYOPATHY
     Dosage: 80 MG, QD
     Route: 048

REACTIONS (2)
  - Retinal vein occlusion [Not Recovered/Not Resolved]
  - Visual acuity reduced [Unknown]

NARRATIVE: CASE EVENT DATE: 201411
